FAERS Safety Report 13369022 (Version 1)
Quarter: 2017Q1

REPORT INFORMATION
  Report Type: Spontaneous
  Country: US (occurrence: US)
  Receive Date: 20170323
  Receipt Date: 20170323
  Transmission Date: 20170429
  Serious: Yes (Other)
  Sender: FDA-Public Use
  Company Number: None

PATIENT
  Age: 60 Year
  Sex: Female
  Weight: 98.06 kg

DRUGS (21)
  1. NORTRIPTYLINE [Concomitant]
     Active Substance: NORTRIPTYLINE
  2. ESZOPICLONE. [Concomitant]
     Active Substance: ESZOPICLONE
  3. ADVAIR HFA [Concomitant]
     Active Substance: FLUTICASONE PROPIONATE\SALMETEROL XINAFOATE
  4. VITAMIN E [Concomitant]
     Active Substance: .ALPHA.-TOCOPHEROL
  5. PRAVASTATIN. [Concomitant]
     Active Substance: PRAVASTATIN
  6. IBUPROFEN. [Concomitant]
     Active Substance: IBUPROFEN
  7. ESTRADIOL. [Concomitant]
     Active Substance: ESTRADIOL
  8. PROAIR HFA [Concomitant]
     Active Substance: ALBUTEROL SULFATE
  9. CALCIUM  + D3 [Concomitant]
     Active Substance: CALCIUM\CHOLECALCIFEROL
  10. NEXIUM [Concomitant]
     Active Substance: ESOMEPRAZOLE MAGNESIUM
  11. MEGA RED [Concomitant]
  12. FUROSEMIDE. [Concomitant]
     Active Substance: FUROSEMIDE
  13. JANUVIA [Concomitant]
     Active Substance: SITAGLIPTIN PHOSPHATE
  14. OMEGA 3 [Concomitant]
     Active Substance: OMEGA-3 FATTY ACIDS
  15. POTASSIUM [Concomitant]
     Active Substance: POTASSIUM
  16. LEVOTHYROXINE. [Concomitant]
     Active Substance: LEVOTHYROXINE
  17. AEROSOL DELIVERY SYSTEM [Concomitant]
  18. VITAMIN D [Concomitant]
     Active Substance: CHOLECALCIFEROL
  19. BYDUREON [Suspect]
     Active Substance: EXENATIDE
     Indication: TYPE 2 DIABETES MELLITUS
     Dosage: 4 PENS  EVERY FRIDAY
     Dates: start: 2015, end: 2016
  20. ALBUTEROL. [Concomitant]
     Active Substance: ALBUTEROL
  21. CENTRUM LIQUID VITAMINS [Concomitant]

REACTIONS (1)
  - Alopecia [None]

NARRATIVE: CASE EVENT DATE: 20160101
